FAERS Safety Report 11089253 (Version 2)
Quarter: 2015Q2

REPORT INFORMATION
  Report Type: Spontaneous
  Country: TR (occurrence: TR)
  Receive Date: 20150505
  Receipt Date: 20150524
  Transmission Date: 20150821
  Serious: Yes (Other)
  Sender: FDA-Public Use
  Company Number: TR-AMGEN-TURSP2015010461

PATIENT
  Age: 28 Year
  Sex: Male
  Weight: 70 kg

DRUGS (2)
  1. ENBREL [Suspect]
     Active Substance: ETANERCEPT
     Indication: ANKYLOSING SPONDYLITIS
     Dosage: 50 MG, WEEKLY
     Route: 065
     Dates: start: 2000, end: 201503
  2. BRUFEN                             /00109201/ [Concomitant]
     Active Substance: IBUPROFEN
     Dosage: 400 MG OR 800 MG, AS NEEDED

REACTIONS (5)
  - Injection site bruising [Recovered/Resolved]
  - Mental disorder [Unknown]
  - Pain [Recovered/Resolved]
  - Immunodeficiency [Recovered/Resolved]
  - Drug effect delayed [Unknown]
